FAERS Safety Report 26072734 (Version 1)
Quarter: 2025Q4

REPORT INFORMATION
  Report Type: Spontaneous
  Country: US (occurrence: US)
  Receive Date: 20251121
  Receipt Date: 20251121
  Transmission Date: 20260118
  Serious: No
  Sender: ELI LILLY AND COMPANY
  Company Number: US-ELI_LILLY_AND_COMPANY-US202511013000

PATIENT
  Sex: Female

DRUGS (1)
  1. EMGALITY [Suspect]
     Active Substance: GALCANEZUMAB-GNLM
     Indication: Product used for unknown indication
     Dosage: 2 DOSAGE FORM, OTHER, LOADING DOSE
     Route: 065
     Dates: start: 202508

REACTIONS (2)
  - Intercepted product prescribing error [Unknown]
  - Product dose omission issue [Unknown]
